FAERS Safety Report 7399757-X (Version None)
Quarter: 2011Q1

REPORT INFORMATION
  Report Type: 
  Country: None (occurrence: None)
  Receive Date: 20110329
  Receipt Date: 20110310
  Transmission Date: 20110831
  Serious: Yes (Other)
  Sender: FDA-Public Use
  Company Number: AUR-APL-2011-00981

PATIENT
  Age: 57 Year
  Sex: Female
  Weight: 54.8852 kg

DRUGS (6)
  1. LISINOPRIL [Concomitant]
  2. ZOLOFT [Concomitant]
  3. ALENDRONATE SODIUM [Suspect]
     Indication: OSTEOPENIA
     Dosage: 1 TAB-WEEKLY-ORAL
     Route: 048
     Dates: start: 20101201, end: 20110221
  4. VITAMIN B-12 [Concomitant]
  5. ASPIRIN [Concomitant]
  6. SIMVASTATIN [Concomitant]

REACTIONS (7)
  - DYSPHONIA [None]
  - NO THERAPEUTIC RESPONSE [None]
  - FRACTURE [None]
  - FALL [None]
  - OESOPHAGITIS [None]
  - GASTRITIS [None]
  - OESOPHAGEAL PAIN [None]
